FAERS Safety Report 14330053 (Version 2)
Quarter: 2017Q4

REPORT INFORMATION
  Report Type: Spontaneous
  Country: GB (occurrence: GB)
  Receive Date: 20171227
  Receipt Date: 20171229
  Transmission Date: 20180321
  Serious: Yes (Hospitalization)
  Sender: FDA-Public Use
  Company Number: GB-PFIZER INC-2017546274

PATIENT
  Age: 28 Year
  Sex: Female
  Weight: 68 kg

DRUGS (5)
  1. LANSOPRAZOLE. [Suspect]
     Active Substance: LANSOPRAZOLE
     Indication: DYSPEPSIA
     Dosage: 30 MG, 1X/DAY
     Route: 048
     Dates: start: 20171130
  2. CYCLIZINE [Concomitant]
     Active Substance: CYCLIZINE
     Dosage: 50 MG, AS NEEDED (3 TIMES A DAY)
  3. THIAMINE. [Concomitant]
     Active Substance: THIAMINE
     Dosage: 200 MG, 1X/DAY
  4. SERTRALINE HCL [Suspect]
     Active Substance: SERTRALINE HYDROCHLORIDE
     Indication: DEPRESSION
     Dosage: 50 MG, 1X/DAY
     Route: 048
  5. LACTULOSE. [Concomitant]
     Active Substance: LACTULOSE
     Dosage: 60 ML, 1X/DAY

REACTIONS (2)
  - Fall [Recovering/Resolving]
  - Hyponatraemia [Recovering/Resolving]
